FAERS Safety Report 23418391 (Version 1)
Quarter: 2024Q1

REPORT INFORMATION
  Report Type: Spontaneous
  Country: US (occurrence: US)
  Receive Date: 20240118
  Receipt Date: 20240118
  Transmission Date: 20240409
  Serious: Yes (Other)
  Sender: FDA-Public Use
  Company Number: US-ENDO PHARMACEUTICALS INC-2023-003286

PATIENT
  Sex: Male

DRUGS (1)
  1. PERCOCET [Suspect]
     Active Substance: ACETAMINOPHEN\OXYCODONE HYDROCHLORIDE
     Indication: Spinal cord injury
     Dosage: UNK UNKNOWN, UNKNOWN
     Route: 065
     Dates: start: 2014

REACTIONS (2)
  - Dependence [Unknown]
  - Overdose [Unknown]

NARRATIVE: CASE EVENT DATE: 20140101
